FAERS Safety Report 7409624-0 (Version None)
Quarter: 2011Q2

REPORT INFORMATION
  Report Type: 
  Country: None (occurrence: None)
  Receive Date: 20110412
  Receipt Date: 20110406
  Transmission Date: 20111010
  Serious: Yes (Other)
  Sender: FDA-Public Use
  Company Number: GB-ABBOTT-11P-167-0717576-00

PATIENT
  Sex: Female

DRUGS (1)
  1. HUMIRA [Suspect]
     Indication: CROHN'S DISEASE
     Route: 058
     Dates: start: 20080801

REACTIONS (4)
  - LETHARGY [None]
  - SERUM FERRITIN DECREASED [None]
  - HAEMOGLOBIN DECREASED [None]
  - FATIGUE [None]
